FAERS Safety Report 14834421 (Version 1)
Quarter: 2018Q2

REPORT INFORMATION
  Report Type: Spontaneous
  Country: US (occurrence: US)
  Receive Date: 20180501
  Receipt Date: 20180501
  Transmission Date: 20180711
  Serious: Yes (Hospitalization)
  Sender: FDA-Public Use
  Company Number: US-BEH-2018090045

PATIENT
  Age: 83 Year
  Sex: Female
  Weight: 120.18 kg

DRUGS (22)
  1. ZEMAIRA [Suspect]
     Active Substance: .ALPHA.1-PROTEINASE INHIBITOR HUMAN
     Dosage: UNK
     Route: 042
  2. LASIX [Concomitant]
     Active Substance: FUROSEMIDE
  3. DILTIAZEM. [Concomitant]
     Active Substance: DILTIAZEM
  4. COUMADIN [Concomitant]
     Active Substance: WARFARIN SODIUM
  5. DIPHENHYDRAMINE. [Concomitant]
     Active Substance: DIPHENHYDRAMINE
  6. EPINEPHRINE. [Concomitant]
     Active Substance: EPINEPHRINE
  7. CALCIUM [Concomitant]
     Active Substance: CALCIUM
  8. MULTIVITAMINS W/MINERALS [Concomitant]
     Active Substance: MINERALS\VITAMINS
  9. QUININE [Concomitant]
     Active Substance: QUININE
  10. SODIUM CHLORIDE. [Concomitant]
     Active Substance: SODIUM CHLORIDE
  11. MECLIZINE [Concomitant]
     Active Substance: MECLIZINE HYDROCHLORIDE
  12. TYLENOL [Concomitant]
     Active Substance: ACETAMINOPHEN
  13. ZOCOR [Concomitant]
     Active Substance: SIMVASTATIN
  14. POTASSIUM [Concomitant]
     Active Substance: POTASSIUM
  15. OXYGEN. [Concomitant]
     Active Substance: OXYGEN
  16. LIDOCAINE. [Concomitant]
     Active Substance: LIDOCAINE
  17. RAMIPRIL. [Concomitant]
     Active Substance: RAMIPRIL
  18. ZEMAIRA [Suspect]
     Active Substance: .ALPHA.1-PROTEINASE INHIBITOR HUMAN
     Indication: ALPHA-1 ANTI-TRYPSIN DEFICIENCY
     Dosage: 60 MG/KG, UNK
     Route: 042
     Dates: start: 20140120
  19. FLECAINIDE [Concomitant]
     Active Substance: FLECAINIDE
  20. MULTIVITAMINS [Concomitant]
     Active Substance: VITAMINS
  21. VITAMIN D3 [Concomitant]
     Active Substance: CHOLECALCIFEROL
  22. PHYTOMEGA                          /07631101/ [Concomitant]

REACTIONS (2)
  - Oedema [Unknown]
  - Dyspnoea [Unknown]

NARRATIVE: CASE EVENT DATE: 20180418
